FAERS Safety Report 4769891-9 (Version None)
Quarter: 2005Q3

REPORT INFORMATION
  Report Type: 
  Country: None (occurrence: None)
  Receive Date: 20050915
  Receipt Date: 20050831
  Transmission Date: 20060218
  Serious: Yes (Other)
  Sender: FDA-Public Use
  Company Number: US-AMGEN-US148685

PATIENT

DRUGS (1)
  1. ENBREL [Suspect]
     Indication: SARCOIDOSIS

REACTIONS (1)
  - MENINGITIS ASEPTIC [None]
